FAERS Safety Report 5470003-7 (Version None)
Quarter: 2007Q3

REPORT INFORMATION
  Report Type: 
  Country: None (occurrence: None)
  Receive Date: 20070927
  Receipt Date: 20070918
  Transmission Date: 20080115
  Serious: Yes (Other)
  Sender: FDA-Public Use
  Company Number: US-PFIZER INC-2007077930

PATIENT
  Sex: Female

DRUGS (5)
  1. LYRICA [Suspect]
     Indication: FIBROMYALGIA
  2. ALPRAZOLAM [Suspect]
     Indication: ANXIETY
  3. CYMBALTA [Concomitant]
  4. TRAMADOL HCL [Concomitant]
  5. ADVIL LIQUI-GELS [Concomitant]

REACTIONS (8)
  - DECREASED APPETITE [None]
  - DIZZINESS [None]
  - DRUG INEFFECTIVE [None]
  - DRY MOUTH [None]
  - EUPHORIC MOOD [None]
  - INSOMNIA [None]
  - LIBIDO INCREASED [None]
  - WEIGHT DECREASED [None]
